FAERS Safety Report 11444896 (Version 1)
Quarter: 2015Q3

REPORT INFORMATION
  Report Type: Spontaneous
  Country: US (occurrence: None)
  Receive Date: 20150831
  Receipt Date: 20150831
  Transmission Date: 20151125
  Serious: Yes (Other)
  Sender: FDA-Public Use
  Company Number: None

PATIENT
  Age: 67 Year
  Sex: Female
  Weight: 58.51 kg

DRUGS (9)
  1. DEPO-MEDROL [Suspect]
     Active Substance: METHYLPREDNISOLONE ACETATE
  2. ALPRAZOLAM. [Concomitant]
     Active Substance: ALPRAZOLAM
  3. HYDROCHLOROTHIAZIDE HCTZ [Concomitant]
  4. CATAFLAM [Concomitant]
     Active Substance: DICLOFENAC POTASSIUM
  5. HYDROCODONE BITARTRATE AND ACETAMINOPHEN [Concomitant]
     Active Substance: ACETAMINOPHEN\HYDROCODONE BITARTRATE
  6. CLARITIN [Concomitant]
     Active Substance: LORATADINE
  7. CILOSTAZOL. [Concomitant]
     Active Substance: CILOSTAZOL
  8. ASPIRIN. [Concomitant]
     Active Substance: ASPIRIN
  9. TRICOR [Concomitant]
     Active Substance: FENOFIBRATE

REACTIONS (17)
  - Dizziness [None]
  - Constipation [None]
  - Injection site pain [None]
  - Faecaloma [None]
  - Hypophagia [None]
  - Blood urine present [None]
  - Decreased appetite [None]
  - Nervousness [None]
  - Insomnia [None]
  - Balance disorder [None]
  - Swelling [None]
  - Pain [None]
  - Diarrhoea [None]
  - Abdominal distension [None]
  - Hyperhidrosis [None]
  - Headache [None]
  - Vomiting [None]

NARRATIVE: CASE EVENT DATE: 20150701
